FAERS Safety Report 4356579-1 (Version None)
Quarter: 2004Q2

REPORT INFORMATION
  Report Type: 
  Country: None (occurrence: None)
  Receive Date: 20040507
  Receipt Date: 20040421
  Transmission Date: 20050107
  Serious: Yes (Hospitalization)
  Sender: FDA-Public Use
  Company Number: EWC040438972

PATIENT
  Age: 15 Year
  Sex: Male

DRUGS (1)
  1. CECLOR [Suspect]
     Indication: OTITIS MEDIA CHRONIC
     Dosage: 500 MG/2 DAY
     Dates: start: 20040401, end: 20040407

REACTIONS (1)
  - DRUG INEFFECTIVE [None]
